FAERS Safety Report 5508481-7 (Version None)
Quarter: 2007Q4

REPORT INFORMATION
  Report Type: 
  Country: None (occurrence: None)
  Receive Date: 20071031
  Receipt Date: 20070810
  Transmission Date: 20080405
  Serious: No
  Sender: FDA-Public Use
  Company Number: 200712738BWH

PATIENT
  Age: 53 Year
  Sex: Female
  Weight: 43.5453 kg

DRUGS (9)
  1. NEXAVAR [Suspect]
     Indication: HEPATIC NEOPLASM MALIGNANT
     Dosage: 400 MG, BID, ORAL
     Route: 048
     Dates: start: 20070426
  2. TOPROL-XL [Concomitant]
  3. PRINIVIL [Concomitant]
  4. ACIPHEX [Concomitant]
  5. WELLBUTRIN SR [Concomitant]
  6. COENZYME Q10 [Concomitant]
  7. FOLIC ACID [Concomitant]
  8. B-6 [Concomitant]
  9. MILK THISTLE [Concomitant]

REACTIONS (3)
  - BACK PAIN [None]
  - JAUNDICE [None]
  - PRURITUS [None]
